FAERS Safety Report 9973375 (Version 3)
Quarter: 2014Q1

REPORT INFORMATION
  Report Type: Spontaneous
  Country: JP (occurrence: JP)
  Receive Date: 20140306
  Receipt Date: 20140313
  Transmission Date: 20141002
  Serious: Yes (Hospitalization, Other)
  Sender: FDA-Public Use
  Company Number: JP-BAYER-2014-028638

PATIENT
  Age: 91 Year
  Sex: Female

DRUGS (1)
  1. BAYASPIRIN [Suspect]
     Route: 048

REACTIONS (7)
  - Shock haemorrhagic [Recovering/Resolving]
  - Lobar pneumonia [None]
  - Syncope [None]
  - Fall [None]
  - Subcutaneous haematoma [None]
  - Productive cough [None]
  - Hypoxia [None]
